FAERS Safety Report 4686770-6 (Version None)
Quarter: 2005Q2

REPORT INFORMATION
  Report Type: 
  Country: None (occurrence: None)
  Receive Date: 20050606
  Receipt Date: 20050601
  Transmission Date: 20051028
  Serious: Yes (Hospitalization)
  Sender: FDA-Public Use
  Company Number: DE_050516006

PATIENT
  Age: 70 Year
  Sex: Female

DRUGS (10)
  1. FLUOXETINE [Suspect]
     Indication: DEPRESSION
     Dosage: 20 MG DAY
     Dates: start: 20050405, end: 20050522
  2. RISPERDAL [Concomitant]
  3. MAGNESIUM VERLA (MAGNESIUM HYDROGEN ASPARTATE) [Concomitant]
  4. PLAVIX [Concomitant]
  5. ACETYLSALICYLIC ACID SRT [Concomitant]
  6. VERTIGO ^HEVERT^ [Concomitant]
  7. HAEMOPROTECT (FERROUS SULFATE) [Concomitant]
  8. ZOPICLON (ZOPICLONE) [Concomitant]
  9. HALDOL (HALOPERIDOL DECANOATE) [Concomitant]
  10. DIGITALIS [Concomitant]

REACTIONS (3)
  - DYSPNOEA [None]
  - OEDEMA PERIPHERAL [None]
  - PLEURAL EFFUSION [None]
